FAERS Safety Report 8241442-6 (Version None)
Quarter: 2012Q1

REPORT INFORMATION
  Report Type: 
  Country: None (occurrence: None)
  Receive Date: 20120328
  Receipt Date: 20120319
  Transmission Date: 20120608
  Serious: Yes (Death, Hospitalization)
  Sender: FDA-Public Use
  Company Number: AU-SANOFI-AVENTIS-2010SA008415

PATIENT
  Age: 76 Year
  Sex: Male
  Weight: 89 kg

DRUGS (11)
  1. LACTULOSE [Concomitant]
  2. ZOLADEX [Concomitant]
  3. COLOXYL [Concomitant]
  4. DOCETAXEL [Suspect]
     Route: 042
     Dates: start: 20100122, end: 20100122
  5. NEXIUM [Concomitant]
  6. METOCLOPRAMIDE [Concomitant]
     Dates: start: 20100101
  7. AFLIBERCEPT [Suspect]
     Route: 042
     Dates: start: 20100122, end: 20100122
  8. PREDNISOLONE [Suspect]
     Route: 048
     Dates: start: 20100122
  9. CALTRATE +D [Concomitant]
     Dates: start: 20100121
  10. GRANISETRON [Concomitant]
     Dates: start: 20100122, end: 20100122
  11. PICOLAX [Concomitant]
     Dates: start: 20100204, end: 20100205

REACTIONS (2)
  - SEPTIC SHOCK [None]
  - DIVERTICULAR PERFORATION [None]
